FAERS Safety Report 8517373-0 (Version None)
Quarter: 2012Q3

REPORT INFORMATION
  Report Type: 
  Country: None (occurrence: None)
  Receive Date: 20120718
  Receipt Date: 20120710
  Transmission Date: 20120928
  Serious: Yes (Other)
  Sender: FDA-Public Use
  Company Number: US-US-EMD SERONO, INC.-7128600

PATIENT
  Sex: Female

DRUGS (7)
  1. HUMIRA [Concomitant]
     Indication: CROHN'S DISEASE
     Dates: start: 20110801
  2. REBIF [Suspect]
     Indication: MULTIPLE SCLEROSIS
     Dates: start: 20120316
  3. UNSPECIFIED MEDICATION [Concomitant]
     Indication: CROHN'S DISEASE
  4. REBIF [Suspect]
     Dates: start: 20120330
  5. BENADRYL [Concomitant]
     Indication: PREMEDICATION
  6. TYLENOL [Concomitant]
     Indication: PREMEDICATION
  7. REBIF [Suspect]
     Route: 058

REACTIONS (9)
  - NASOPHARYNGITIS [None]
  - HYPOAESTHESIA [None]
  - SLEEP DISORDER [None]
  - INFLUENZA LIKE ILLNESS [None]
  - INJECTION SITE REACTION [None]
  - VITAMIN B12 DEFICIENCY [None]
  - LEUKOPENIA [None]
  - CROHN'S DISEASE [None]
  - PARAESTHESIA [None]
